FAERS Safety Report 9070954 (Version 1)
Quarter: 2013Q1

REPORT INFORMATION
  Report Type: Spontaneous
  Country: FR (occurrence: FR)
  Receive Date: 20130129
  Receipt Date: 20130129
  Transmission Date: 20140127
  Serious: Yes (Disabling)
  Sender: FDA-Public Use
  Company Number: FR-VIIV HEALTHCARE LIMITED-B0858862A

PATIENT
  Sex: 0

DRUGS (4)
  1. RETROVIR [Suspect]
     Indication: ANTIVIRAL PROPHYLAXIS
     Dosage: 4MGK TWICE PER DAY
     Route: 048
     Dates: start: 20080918, end: 20081017
  2. RETROVIR [Suspect]
     Indication: ANTIVIRAL PROPHYLAXIS
     Route: 064
     Dates: start: 20080918, end: 20080918
  3. TRUVADA [Suspect]
     Indication: HIV INFECTION
     Route: 064
     Dates: start: 20060615, end: 20080918
  4. SUSTIVA [Suspect]
     Indication: HIV INFECTION
     Route: 064
     Dates: start: 20060615, end: 20080918

REACTIONS (5)
  - Developmental delay [Recovering/Resolving]
  - Speech disorder developmental [Recovering/Resolving]
  - Abnormal behaviour [Recovering/Resolving]
  - Agitation [Recovering/Resolving]
  - Foetal exposure during pregnancy [Unknown]
